FAERS Safety Report 15991292 (Version 1)
Quarter: 2019Q1

REPORT INFORMATION
  Report Type: Spontaneous
  Country: FR (occurrence: FR)
  Receive Date: 20190221
  Receipt Date: 20190221
  Transmission Date: 20190418
  Serious: Yes (Other)
  Sender: FDA-Public Use
  Company Number: FR-009507513-1902FRA005138

PATIENT
  Age: 35 Year
  Sex: Female

DRUGS (1)
  1. NEXPLANON [Suspect]
     Active Substance: ETONOGESTREL
     Indication: CONTRACEPTION
     Dosage: DOSAGE ALSO REPORTED AS 40 MILLIGRAM, DAILY(QD)
     Route: 058
     Dates: start: 20180628, end: 20190124

REACTIONS (4)
  - Menometrorrhagia [Recovered/Resolved]
  - Persistent depressive disorder [Recovered/Resolved]
  - Asthenia [Recovered/Resolved]
  - Affective disorder [Recovered/Resolved]

NARRATIVE: CASE EVENT DATE: 201807
